FAERS Safety Report 22007934 (Version 1)
Quarter: 2023Q1

REPORT INFORMATION
  Report Type: Spontaneous
  Country: CN (occurrence: CN)
  Receive Date: 20230218
  Receipt Date: 20230218
  Transmission Date: 20230418
  Serious: Yes (Hospitalization, Other)
  Sender: FDA-Public Use
  Company Number: CN-002147023-NVSC2023CN034451

PATIENT
  Age: 55 Year
  Sex: Male

DRUGS (4)
  1. CERITINIB [Suspect]
     Active Substance: CERITINIB
     Indication: Targeted cancer therapy
     Dosage: UNK
     Route: 065
     Dates: end: 20221119
  2. CRIZOTINIB [Suspect]
     Active Substance: CRIZOTINIB
     Indication: Targeted cancer therapy
     Dosage: UNK
     Route: 065
     Dates: end: 20221119
  3. PHOSPHOLIPID [Concomitant]
     Active Substance: PHOSPHOLIPID
     Indication: Product used for unknown indication
     Dosage: UNK
     Route: 065
  4. MAGNESIUM ISOGLYCYRRHIZINATE [Concomitant]
     Active Substance: MAGNESIUM ISOGLYCYRRHIZINATE
     Indication: Product used for unknown indication
     Dosage: UNK
     Route: 065

REACTIONS (14)
  - Metastases to central nervous system [Unknown]
  - Vision blurred [Unknown]
  - Headache [Unknown]
  - Lung adenocarcinoma [Unknown]
  - Malignant neoplasm progression [Unknown]
  - Muscular weakness [Unknown]
  - Anisocoria [Unknown]
  - Pupillary reflex impaired [Unknown]
  - Hepatic function abnormal [Recovering/Resolving]
  - Alanine aminotransferase increased [Unknown]
  - Aspartate aminotransferase increased [Unknown]
  - Mental disorder [Recovered/Resolved]
  - Sleep disorder [Unknown]
  - Chronic disease [Unknown]

NARRATIVE: CASE EVENT DATE: 20221117
